FAERS Safety Report 5451280-5 (Version None)
Quarter: 2007Q3

REPORT INFORMATION
  Report Type: 
  Country: None (occurrence: None)
  Receive Date: 20070911
  Receipt Date: 20070911
  Transmission Date: 20080115
  Serious: Yes (Hospitalization)
  Sender: FDA-Public Use
  Company Number: None

PATIENT
  Sex: Male
  Weight: 95.709 kg

DRUGS (1)
  1. METHOTREXATE [Suspect]
     Indication: ACUTE LYMPHOCYTIC LEUKAEMIA
     Dosage: UNK UNK IT
     Route: 037
     Dates: start: 20060321, end: 20061014

REACTIONS (3)
  - ASTHENIA [None]
  - DYSPHAGIA [None]
  - DYSPNOEA [None]
